FAERS Safety Report 9512647 (Version 1)
Quarter: 2013Q1

REPORT INFORMATION
  Report Type: Spontaneous
  Country: US (occurrence: None)
  Receive Date: 20130305
  Receipt Date: 20130305
  Transmission Date: 20140127
  Serious: Yes (Other)
  Sender: FDA-Public Use
  Company Number: 163-21880-12090715

PATIENT
  Age: 80 Year
  Sex: Male

DRUGS (2)
  1. REVLIMID [Suspect]
     Indication: MANTLE CELL LYMPHOMA
     Dosage: X 21 DAYS
     Route: 048
     Dates: start: 20120518
  2. MULTIPLE CHEMOTHERAPIES (OTHER) CHEMOTHERAPEUTICS) (UNKNOWN) [Concomitant]

REACTIONS (1)
  - Fatigue [None]
